FAERS Safety Report 4569456-8 (Version None)
Quarter: 2005Q1

REPORT INFORMATION
  Report Type: 
  Country: None (occurrence: None)
  Receive Date: 20050203
  Receipt Date: 20050127
  Transmission Date: 20050727
  Serious: Yes (Other)
  Sender: FDA-Public Use
  Company Number: PHFR2005GB00727

PATIENT
  Age: 26 Year
  Sex: Male

DRUGS (2)
  1. CLOZARIL [Suspect]
     Indication: SCHIZOPHRENIA
     Dosage: 100 MG, BID
     Route: 048
     Dates: start: 20050113, end: 20050127
  2. OLANZAPINE [Concomitant]
     Dosage: 20MG/DAY
     Route: 048

REACTIONS (7)
  - CHEST PAIN [None]
  - ECG P WAVE INVERTED [None]
  - EOSINOPHIL COUNT INCREASED [None]
  - HYPOTHERMIA [None]
  - MEAN CELL VOLUME ABNORMAL [None]
  - MONOCYTE COUNT INCREASED [None]
  - TACHYCARDIA [None]
